FAERS Safety Report 13789023 (Version 3)
Quarter: 2017Q4

REPORT INFORMATION
  Report Type: Report from Study
  Country: None (occurrence: NZ)
  Receive Date: 20170725
  Receipt Date: 20171201
  Transmission Date: 20180320
  Serious: Yes (Life-Threatening, Other)
  Sender: FDA-Public Use
  Company Number: NZ-ABBVIE-17K-118-2049588-00

PATIENT
  Age: 53 Year
  Sex: Female
  Weight: 81 kg

DRUGS (1)
  1. HUMIRA [Suspect]
     Active Substance: ADALIMUMAB
     Indication: RHEUMATOID ARTHRITIS
     Route: 058
     Dates: start: 20151027, end: 20170208

REACTIONS (11)
  - Ovarian cancer stage I [Unknown]
  - Neuropathic muscular atrophy [Unknown]
  - Post procedural discomfort [Not Recovered/Not Resolved]
  - Motor neurone disease [Unknown]
  - Adenocarcinoma [Unknown]
  - Dysphagia [Unknown]
  - Emotional distress [Unknown]
  - Abdominal discomfort [Recovering/Resolving]
  - Muscle contractions involuntary [Unknown]
  - Hyperreflexia [Unknown]
  - Muscular weakness [Unknown]

NARRATIVE: CASE EVENT DATE: 2016
